FAERS Safety Report 9880542 (Version 1)
Quarter: 2014Q1

REPORT INFORMATION
  Report Type: Spontaneous
  Country: US (occurrence: None)
  Receive Date: 20140206
  Receipt Date: 20140206
  Transmission Date: 20141002
  Serious: Yes (Life-Threatening, Hospitalization, Other)
  Sender: FDA-Public Use
  Company Number: None

PATIENT
  Age: 28 Year
  Sex: Female
  Weight: 131.54 kg

DRUGS (2)
  1. MICROGESTIN [Suspect]
     Indication: CONTRACEPTION
     Dosage: 1 PILL  ONCE DAILY  TAKEN BY MOUTH
     Route: 048
     Dates: start: 20121214, end: 20130824
  2. MICROGESTIN [Suspect]
     Indication: MENSTRUATION IRREGULAR
     Dosage: 1 PILL  ONCE DAILY  TAKEN BY MOUTH
     Route: 048
     Dates: start: 20121214, end: 20130824

REACTIONS (3)
  - Pulmonary embolism [None]
  - Pulmonary infarction [None]
  - Thrombosis [None]
